FAERS Safety Report 24576732 (Version 3)
Quarter: 2024Q4

REPORT INFORMATION
  Report Type: Report from Study
  Country: CA (occurrence: CA)
  Receive Date: 20241104
  Receipt Date: 20241113
  Transmission Date: 20250115
  Serious: Yes (Other)
  Sender: JOHNSON AND JOHNSON
  Company Number: CA-JNJFOC-20241073995

PATIENT
  Age: 12 Year
  Sex: Female
  Weight: 35 kg

DRUGS (7)
  1. STELARA [Suspect]
     Active Substance: USTEKINUMAB
     Indication: Crohn^s disease
     Route: 058
     Dates: start: 20240702
  2. STELARA [Suspect]
     Active Substance: USTEKINUMAB
     Dosage: DATE OF TREATMENT: 24-OCT-2024
     Route: 058
     Dates: start: 20240508
  3. STELARA [Suspect]
     Active Substance: USTEKINUMAB
     Route: 058
  4. REMICADE [Suspect]
     Active Substance: INFLIXIMAB
     Indication: Product used for unknown indication
     Route: 042
  5. GABAPENTIN [Concomitant]
     Active Substance: GABAPENTIN
     Indication: Product used for unknown indication
  6. MIRTAZAPINE [Concomitant]
     Active Substance: MIRTAZAPINE
  7. VITAMINS NOS [Concomitant]
     Active Substance: VITAMINS

REACTIONS (2)
  - Crohn^s disease [Unknown]
  - Eczema [Not Recovered/Not Resolved]
